FAERS Safety Report 5631810-0 (Version None)
Quarter: 2008Q1

REPORT INFORMATION
  Report Type: 
  Country: None (occurrence: None)
  Receive Date: 20080220
  Receipt Date: 20080215
  Transmission Date: 20080703
  Serious: Yes (Life-Threatening, Hospitalization)
  Sender: FDA-Public Use
  Company Number: PHEH2008US01876

PATIENT
  Age: 9 Year
  Sex: Male

DRUGS (1)
  1. FOCALIN XR [Suspect]
     Indication: ATTENTION DEFICIT/HYPERACTIVITY DISORDER
     Dosage: 20 MG, QD
     Dates: start: 20060519

REACTIONS (4)
  - GASTROINTESTINAL DISORDER [None]
  - MULTI-ORGAN DISORDER [None]
  - MYCOPLASMA INFECTION [None]
  - STEVENS-JOHNSON SYNDROME [None]
